FAERS Safety Report 4348479-8 (Version None)
Quarter: 2004Q2

REPORT INFORMATION
  Report Type: 
  Country: None (occurrence: None)
  Receive Date: 20040427
  Receipt Date: 20040209
  Transmission Date: 20050107
  Serious: No
  Sender: FDA-Public Use
  Company Number: US-GLAXOSMITHKLINE-A0497202A

PATIENT
  Age: 52 Year
  Sex: Female

DRUGS (3)
  1. VENTOLIN [Suspect]
     Indication: ASTHMA
     Dosage: 2PUFF AS REQUIRED
     Route: 055
  2. VIT C [Concomitant]
  3. IBUPROFEN [Concomitant]

REACTIONS (1)
  - DRUG INEFFECTIVE [None]
